FAERS Safety Report 7407472-9 (Version None)
Quarter: 2011Q2

REPORT INFORMATION
  Report Type: 
  Country: None (occurrence: None)
  Receive Date: 20110411
  Receipt Date: 20110330
  Transmission Date: 20111010
  Serious: Yes (Hospitalization)
  Sender: FDA-Public Use
  Company Number: CH-BAYER-2011-027154

PATIENT
  Age: 76 Year
  Sex: Male

DRUGS (17)
  1. GLICLAZIDE [Interacting]
     Indication: DIABETES MELLITUS
     Dosage: 1 DF, QD
     Route: 048
     Dates: end: 20110131
  2. DIOVAN [Concomitant]
  3. AVELOX [Interacting]
     Indication: PNEUMONITIS
     Dosage: 400 MG, QD
     Route: 048
     Dates: start: 20101224, end: 20101231
  4. CORVATON [Concomitant]
  5. FLAMON-80 [Concomitant]
  6. METOPROLOL SUCCINATE [Concomitant]
  7. CARVEDILOL [Concomitant]
  8. SIMVASTATIN [Concomitant]
  9. MEPHANOL [Concomitant]
  10. XANAX [Concomitant]
  11. JANUMET [Suspect]
     Indication: DIABETES MELLITUS
     Dosage: 1 DF, UNK
     Route: 048
     Dates: end: 20110131
  12. MADOPAR [Concomitant]
  13. DIGOXIN [Concomitant]
  14. PANTOZOL [Concomitant]
  15. SINTROM [Concomitant]
  16. ASPIRIN [Concomitant]
  17. TORASEMID [Concomitant]

REACTIONS (1)
  - HYPOGLYCAEMIA [None]
